FAERS Safety Report 19354953 (Version 1)
Quarter: 2021Q2

REPORT INFORMATION
  Report Type: Spontaneous
  Country: US (occurrence: US)
  Receive Date: 20210601
  Receipt Date: 20210601
  Transmission Date: 20210717
  Serious: Yes (Death)
  Sender: FDA-Public Use
  Company Number: None

PATIENT
  Age: 52 Year
  Sex: Male

DRUGS (1)
  1. KEYTRUDA [Suspect]
     Active Substance: PEMBROLIZUMAB
     Dosage: ?          OTHER FREQUENCY:OTHER;OTHER ROUTE:INTRAVENOUS DRIP?
     Dates: start: 20210401, end: 20210508

REACTIONS (1)
  - Death [None]

NARRATIVE: CASE EVENT DATE: 20210508
